FAERS Safety Report 16799858 (Version 1)
Quarter: 2019Q4

REPORT INFORMATION
  Report Type: Spontaneous
  Country: US (occurrence: US)
  Receive Date: 20190912
  Receipt Date: 20190912
  Transmission Date: 20200122
  Serious: Yes (Death)
  Sender: FDA-Public Use
  Company Number: None

PATIENT
  Age: 66 Year
  Sex: Male

DRUGS (13)
  1. GLATIRAMER [Suspect]
     Active Substance: GLATIRAMER
     Indication: MULTIPLE SCLEROSIS
     Dosage: ?          OTHER FREQUENCY:3 X PER WEEK;?
     Route: 058
     Dates: start: 20150701, end: 20190831
  2. METFORMIN [Concomitant]
     Active Substance: METFORMIN HYDROCHLORIDE
  3. LYRICA [Concomitant]
     Active Substance: PREGABALIN
  4. DULOXETINE. [Concomitant]
     Active Substance: DULOXETINE
  5. SODIUM CHLOR SOLUTION [Concomitant]
  6. METHENAM HIP TAB [Concomitant]
  7. BUDESONIDE SUS [Concomitant]
  8. BACLOFEN. [Concomitant]
     Active Substance: BACLOFEN
  9. ACETYLCYST SOL [Concomitant]
  10. PREGABALIN. [Concomitant]
     Active Substance: PREGABALIN
  11. BROVANA [Concomitant]
     Active Substance: ARFORMOTEROL TARTRATE
  12. NEXIUM [Concomitant]
     Active Substance: ESOMEPRAZOLE MAGNESIUM
  13. METOCLOPRAMIDE. [Concomitant]
     Active Substance: METOCLOPRAMIDE

REACTIONS (1)
  - Death [None]

NARRATIVE: CASE EVENT DATE: 20190831
